FAERS Safety Report 4432748-7 (Version None)
Quarter: 2004Q3

REPORT INFORMATION
  Report Type: 
  Country: None (occurrence: None)
  Receive Date: 20040820
  Receipt Date: 20040806
  Transmission Date: 20050211
  Serious: Yes (Death, Hospitalization)
  Sender: FDA-Public Use
  Company Number: 2004033109

PATIENT
  Age: 70 Year
  Sex: Female

DRUGS (1)
  1. SERTRALINE HCL [Suspect]
     Indication: ILL-DEFINED DISORDER
     Dosage: ORAL
     Route: 048

REACTIONS (9)
  - ACUTE RESPIRATORY DISTRESS SYNDROME [None]
  - COAGULOPATHY [None]
  - CONTUSION [None]
  - FALL [None]
  - MULTI-ORGAN FAILURE [None]
  - PELVIC FRACTURE [None]
  - RIB FRACTURE [None]
  - SKIN LACERATION [None]
  - TENDON INJURY [None]
